FAERS Safety Report 13798421 (Version 1)
Quarter: 2017Q3

REPORT INFORMATION
  Report Type: Spontaneous
  Country: US (occurrence: US)
  Receive Date: 20170727
  Receipt Date: 20170727
  Transmission Date: 20171127
  Serious: Yes (Death, Other)
  Sender: FDA-Public Use
  Company Number: US-ROCHE-1968023

PATIENT
  Age: 67 Year
  Sex: Male
  Weight: 102.04 kg

DRUGS (15)
  1. VENCLEXTA [Suspect]
     Active Substance: VENETOCLAX
     Route: 048
  2. DIGOXIN. [Concomitant]
     Active Substance: DIGOXIN
     Route: 065
  3. VENCLEXTA [Suspect]
     Active Substance: VENETOCLAX
     Route: 048
  4. ACYCLOVIR. [Concomitant]
     Active Substance: ACYCLOVIR
  5. MOXIFLOXACIN. [Concomitant]
     Active Substance: MOXIFLOXACIN
  6. VENCLEXTA [Suspect]
     Active Substance: VENETOCLAX
     Route: 048
  7. VENCLEXTA [Suspect]
     Active Substance: VENETOCLAX
     Route: 048
  8. AMOXICILLIN TRIHYDRATE [Concomitant]
     Active Substance: AMOXICILLIN
     Route: 065
  9. VENCLEXTA [Suspect]
     Active Substance: VENETOCLAX
     Indication: MYELODYSPLASTIC SYNDROME
     Route: 048
  10. VENCLEXTA [Suspect]
     Active Substance: VENETOCLAX
     Route: 048
  11. VENCLEXTA [Suspect]
     Active Substance: VENETOCLAX
     Route: 048
  12. MIDODRINE [Concomitant]
     Active Substance: MIDODRINE
     Route: 065
  13. METOPROLOL. [Concomitant]
     Active Substance: METOPROLOL
     Route: 065
  14. NEUPOGEN [Suspect]
     Active Substance: FILGRASTIM
     Indication: WHITE BLOOD CELL COUNT DECREASED
     Dosage: DAILY DOSE: 480 MCG/018 ML AT BED TIME.
     Route: 030
  15. CLARITIN (UNITED STATES) [Concomitant]

REACTIONS (23)
  - Dysstasia [Unknown]
  - Malaise [Unknown]
  - Red blood cell count decreased [Unknown]
  - Platelet count decreased [Unknown]
  - Vision blurred [Unknown]
  - Asthenia [Unknown]
  - Heart rate irregular [Unknown]
  - Insomnia [Unknown]
  - Arthralgia [Unknown]
  - Off label use [Fatal]
  - Vomiting [Unknown]
  - Back pain [Unknown]
  - Dyspnoea [Unknown]
  - Death [Fatal]
  - Urine abnormality [Unknown]
  - White blood cell count decreased [Unknown]
  - Visual impairment [Unknown]
  - Quality of life decreased [Unknown]
  - Feeling abnormal [Unknown]
  - Muscular weakness [Unknown]
  - Confusional state [Unknown]
  - Weight fluctuation [Unknown]
  - Myalgia [Unknown]

NARRATIVE: CASE EVENT DATE: 2017
